FAERS Safety Report 22387378 (Version 1)
Quarter: 2023Q2

REPORT INFORMATION
  Report Type: Spontaneous
  Country: DE (occurrence: DE)
  Receive Date: 20230531
  Receipt Date: 20230531
  Transmission Date: 20230721
  Serious: Yes (Hospitalization)
  Sender: FDA-Public Use
  Company Number: DE-BAXTER-2023BAX022674

PATIENT
  Sex: Female
  Weight: 57.2 kg

DRUGS (5)
  1. CYCLOPHOSPHAMIDE [Suspect]
     Active Substance: CYCLOPHOSPHAMIDE
     Indication: Rheumatoid arthritis
     Dosage: 860 MG  IN 500 ML NAC,  ROA: INFUSION (2 HOURS)
     Route: 050
     Dates: start: 20230516
  2. MESNA [Suspect]
     Active Substance: MESNA
     Dosage: UNK
     Route: 065
     Dates: start: 20230516
  3. ONDANSETRON [Concomitant]
     Active Substance: ONDANSETRON
     Dosage: UNK
     Route: 065
     Dates: start: 20230516
  4. PREDNISOLONE [Concomitant]
     Active Substance: PREDNISOLONE
     Dosage: 15-0-5
     Route: 065
     Dates: start: 20230516
  5. SULFAMETHOXAZOLE\TRIMETHOPRIM [Concomitant]
     Active Substance: SULFAMETHOXAZOLE\TRIMETHOPRIM
     Dosage: 960 MG (MON-WED-FRI)
     Route: 065
     Dates: start: 20230516

REACTIONS (5)
  - Infusion related reaction [Unknown]
  - Rheumatoid arthritis [Unknown]
  - Procalcitonin increased [Unknown]
  - C-reactive protein increased [Unknown]
  - Pyrexia [Unknown]

NARRATIVE: CASE EVENT DATE: 20230517
